FAERS Safety Report 4880694-7 (Version None)
Quarter: 2006Q1

REPORT INFORMATION
  Report Type: 
  Country: None (occurrence: None)
  Receive Date: 20060113
  Receipt Date: 20050317
  Transmission Date: 20060701
  Serious: Yes (Hospitalization)
  Sender: FDA-Public Use
  Company Number: US-MERCK-0503USA03424

PATIENT
  Age: 58 Year
  Sex: Female
  Weight: 82 kg

DRUGS (22)
  1. VIOXX [Suspect]
     Indication: ARTHRITIS
     Route: 048
     Dates: start: 19990101, end: 20040801
  2. VIOXX [Suspect]
     Route: 048
     Dates: start: 19990101, end: 19990101
  3. NORVASC [Concomitant]
     Route: 065
  4. ULTRAM [Concomitant]
     Route: 065
  5. ZOCOR [Concomitant]
     Route: 048
  6. PREMARIN [Concomitant]
     Route: 065
  7. SOMA [Concomitant]
     Route: 065
  8. VOLMAX [Concomitant]
     Route: 065
  9. TRAMADOL HYDROCHLORIDE [Concomitant]
     Route: 065
  10. LIPITOR [Concomitant]
     Route: 065
  11. DIGITEK [Concomitant]
     Route: 065
  12. TYLENOL W/ CODEINE NO. 3 [Concomitant]
     Route: 065
  13. VICODIN [Concomitant]
     Route: 065
  14. CLARINEX [Concomitant]
     Route: 065
  15. BENADRYL [Concomitant]
     Route: 065
  16. PREDNISONE [Concomitant]
     Route: 065
  17. EPIPEN [Concomitant]
     Route: 065
  18. WARFARIN [Concomitant]
     Route: 065
  19. CARTIA XT [Concomitant]
     Route: 065
  20. FAMOTIDINE [Concomitant]
     Route: 065
  21. DIGOXIN [Concomitant]
     Route: 065
  22. PREVACID [Concomitant]
     Route: 065

REACTIONS (23)
  - ANAEMIA [None]
  - ANAPHYLACTIC REACTION [None]
  - AORTIC VALVE INCOMPETENCE [None]
  - ATRIAL FIBRILLATION [None]
  - BLADDER DISORDER [None]
  - BLOOD CALCIUM DECREASED [None]
  - BLOOD TRIGLYCERIDES INCREASED [None]
  - CHEST PAIN [None]
  - CORONARY ARTERY DISEASE [None]
  - DIZZINESS [None]
  - DYSPNOEA EXERTIONAL [None]
  - GASTRITIS [None]
  - GASTROINTESTINAL HAEMORRHAGE [None]
  - HAEMATOMA [None]
  - HYPERLIPIDAEMIA [None]
  - HYPERTROPHIC CARDIOMYOPATHY [None]
  - NOCTURNAL DYSPNOEA [None]
  - OSTEOARTHRITIS [None]
  - PARAESTHESIA [None]
  - PEPTIC ULCER [None]
  - TRANSIENT ISCHAEMIC ATTACK [None]
  - TREMOR [None]
  - VENTRICULAR DYSFUNCTION [None]
